FAERS Safety Report 6996395-5 (Version None)
Quarter: 2010Q3

REPORT INFORMATION
  Report Type: 
  Country: None (occurrence: None)
  Receive Date: 20100918
  Receipt Date: 20090224
  Transmission Date: 20110219
  Serious: No
  Sender: FDA-Public Use
  Company Number: US-WYE-H07984309

PATIENT
  Sex: Female
  Weight: 49.94 kg

DRUGS (3)
  1. EFFEXOR XR [Suspect]
     Indication: HOT FLUSH
     Route: 048
     Dates: start: 20090126, end: 20090126
  2. MULTI-VITAMINS [Concomitant]
  3. ZOCOR [Concomitant]

REACTIONS (9)
  - CHILLS [None]
  - FEELING ABNORMAL [None]
  - HYPERHIDROSIS [None]
  - NAUSEA [None]
  - POOR QUALITY SLEEP [None]
  - RESTLESSNESS [None]
  - SOMNOLENCE [None]
  - TREMOR [None]
  - YAWNING [None]
